FAERS Safety Report 11197325 (Version 1)
Quarter: 2015Q2

REPORT INFORMATION
  Report Type: Spontaneous
  Country: US (occurrence: US)
  Receive Date: 20150617
  Receipt Date: 20150617
  Transmission Date: 20150821
  Serious: Yes (Death, Other)
  Sender: FDA-Public Use
  Company Number: US-009507513-1506USA006188

PATIENT
  Sex: Male

DRUGS (1)
  1. INVANZ [Suspect]
     Active Substance: ERTAPENEM SODIUM
     Indication: POST PROCEDURAL INFECTION

REACTIONS (2)
  - Myocardial infarction [Fatal]
  - Embolism [Fatal]
